FAERS Safety Report 8852249 (Version 1)
Quarter: 2012Q4

REPORT INFORMATION
  Report Type: 
  Country: US (occurrence: US)
  Receive Date: 20121022
  Receipt Date: 20121022
  Transmission Date: 20130627
  Serious: No
  Sender: FDA-Public Use
  Company Number: US-MYLANLABS-2012S1000813

PATIENT
  Age: 77 Year
  Sex: Female

DRUGS (8)
  1. CARVEDILOL [Suspect]
     Indication: BLOOD PRESSURE INCREASED
     Route: 048
     Dates: start: 20111228, end: 20120102
  2. OMEPRAZOLE [Concomitant]
  3. COZAAR [Concomitant]
  4. SIMVASTATIN [Concomitant]
  5. VITAMIN D [Concomitant]
  6. OMEGA 3 FISH OIL [Concomitant]
  7. MAGNESIUM [Concomitant]
  8. CALCIUM COMPLETE [Concomitant]

REACTIONS (1)
  - Abdominal pain [Recovered/Resolved]
